FAERS Safety Report 6540124-6 (Version None)
Quarter: 2010Q1

REPORT INFORMATION
  Report Type: 
  Country: None (occurrence: None)
  Receive Date: 20100115
  Receipt Date: 20100104
  Transmission Date: 20100710
  Serious: Yes (Disabling, Other)
  Sender: FDA-Public Use
  Company Number: GB-WATSON-2010-00109

PATIENT
  Age: 85 Year
  Sex: Male

DRUGS (10)
  1. SIMVASTATIN [Suspect]
     Indication: ATRIAL FIBRILLATION
     Dosage: 40 MG, UNK
     Route: 050
     Dates: end: 20081101
  2. VERAPAMIL [Suspect]
     Indication: ATRIAL FIBRILLATION
     Dosage: 40 MG, TID
     Route: 048
     Dates: start: 20080801
  3. ASPIRIN [Concomitant]
     Indication: DRUG USE FOR UNKNOWN INDICATION
     Dosage: 75 MG, UNK
     Route: 048
  4. BECLOMETASONE [Concomitant]
     Indication: CHRONIC OBSTRUCTIVE PULMONARY DISEASE
     Dosage: 1 DF, BID
  5. BRIMONIDINE TARTRATE [Concomitant]
     Indication: DRUG USE FOR UNKNOWN INDICATION
     Dosage: UNK
  6. FUROSEMIDE [Concomitant]
     Indication: DRUG USE FOR UNKNOWN INDICATION
     Dosage: 40 MG, UNK
     Route: 048
  7. LISINOPRIL [Concomitant]
     Indication: DRUG USE FOR UNKNOWN INDICATION
     Dosage: 20 MG, UNK
     Route: 048
  8. PANADEINE                          /00116401/ [Concomitant]
     Indication: DRUG USE FOR UNKNOWN INDICATION
     Dosage: 2 MG, UNK
  9. ALBUTEROL [Concomitant]
     Indication: CHRONIC OBSTRUCTIVE PULMONARY DISEASE
     Dosage: 2 DF, PRN
     Route: 055
  10. ALBUTEROL SULFATE AUTOHALER [Concomitant]
     Indication: CHRONIC OBSTRUCTIVE PULMONARY DISEASE
     Dosage: 2 MG, BID
     Route: 055

REACTIONS (3)
  - BLOOD CREATINE PHOSPHOKINASE INCREASED [None]
  - HYPOKINESIA [None]
  - MYOSITIS [None]
